FAERS Safety Report 15549315 (Version 1)
Quarter: 2018Q4

REPORT INFORMATION
  Report Type: Spontaneous
  Country: MY (occurrence: MY)
  Receive Date: 20181025
  Receipt Date: 20181025
  Transmission Date: 20190205
  Serious: Yes (Other)
  Sender: FDA-Public Use
  Company Number: MY-TEVA-2018-MY-968761

PATIENT
  Age: 30 Year
  Sex: Male

DRUGS (4)
  1. PREDNISOLONE. [Suspect]
     Active Substance: PREDNISOLONE
     Indication: VOGT-KOYANAGI-HARADA SYNDROME
     Dosage: 50 MILLIGRAM DAILY;
     Route: 048
  2. PREDNISOLONE ACETATE 1% [Suspect]
     Active Substance: PREDNISOLONE ACETATE
     Indication: VOGT-KOYANAGI-HARADA SYNDROME
     Route: 061
  3. METHYLPREDNISOLONE. [Suspect]
     Active Substance: METHYLPREDNISOLONE
     Indication: VOGT-KOYANAGI-HARADA SYNDROME
     Dosage: 1000 MILLIGRAM DAILY;
     Route: 042
  4. HOMATROPINE 2% [Concomitant]
     Indication: VOGT-KOYANAGI-HARADA SYNDROME
     Route: 061

REACTIONS (5)
  - Glaucoma [Recovered/Resolved]
  - Lipohypertrophy [Unknown]
  - Skin striae [Unknown]
  - Cushingoid [Unknown]
  - Cataract [Recovered/Resolved]
